FAERS Safety Report 9121554 (Version 2)
Quarter: 2013Q2

REPORT INFORMATION
  Report Type: Spontaneous
  Country: US (occurrence: US)
  Receive Date: 20130227
  Receipt Date: 20130430
  Transmission Date: 20140414
  Serious: No
  Sender: FDA-Public Use
  Company Number: US-009507513-1302USA010969

PATIENT
  Age: 21 Year
  Sex: Female
  Weight: 49.89 kg

DRUGS (1)
  1. NUVARING [Suspect]
     Dosage: 1 RING FOR 3 WEEKS FOLLOWED BY 1 WEEK BREAK
     Route: 067
     Dates: start: 20120320

REACTIONS (4)
  - Device expulsion [Unknown]
  - Device breakage [Unknown]
  - Product quality issue [Unknown]
  - No adverse event [Unknown]
